FAERS Safety Report 20868279 (Version 2)
Quarter: 2022Q2

REPORT INFORMATION
  Report Type: Spontaneous
  Country: GR (occurrence: GR)
  Receive Date: 20220524
  Receipt Date: 20220614
  Transmission Date: 20220721
  Serious: Yes (Death, Other)
  Sender: FDA-Public Use
  Company Number: GR-GILEAD-2022-0576060

PATIENT
  Age: 65 Year
  Sex: Male

DRUGS (8)
  1. YESCARTA [Suspect]
     Active Substance: AXICABTAGENE CILOLEUCEL
     Indication: Diffuse large B-cell lymphoma
     Dosage: UNK
     Route: 042
     Dates: start: 20220329, end: 20220329
  2. POLATUZUMAB VEDOTIN [Concomitant]
     Active Substance: POLATUZUMAB VEDOTIN
     Dosage: UNK
     Dates: start: 20220303
  3. RITUXIMAB [Concomitant]
     Active Substance: RITUXIMAB
     Dosage: UNK
     Dates: start: 20220303
  4. BENDAMUSTINE [Concomitant]
     Active Substance: BENDAMUSTINE
     Dosage: UNK
     Dates: start: 20220303
  5. MORPHINE [Concomitant]
     Active Substance: MORPHINE
     Dosage: UNK
     Dates: start: 20220320
  6. DEXATON [DEXAMETHASONE SODIUM PHOSPHATE] [Concomitant]
     Dosage: UNK
     Dates: start: 20220320
  7. FLU [FLUCONAZOLE] [Concomitant]
  8. CTX 101 [Concomitant]

REACTIONS (13)
  - Haemorrhage [Fatal]
  - Cytokine release syndrome [Not Recovered/Not Resolved]
  - Sepsis [Unknown]
  - Immune effector cell-associated neurotoxicity syndrome [Unknown]
  - Gastrointestinal haemorrhage [Unknown]
  - Endotracheal intubation [Unknown]
  - Coma [Unknown]
  - Klebsiella infection [Unknown]
  - Peptic ulcer haemorrhage [Unknown]
  - Anuria [Unknown]
  - Pyrexia [Unknown]
  - Haemodynamic instability [Unknown]
  - Oliguria [Unknown]

NARRATIVE: CASE EVENT DATE: 20220331
